FAERS Safety Report 4923250-4 (Version None)
Quarter: 2006Q1

REPORT INFORMATION
  Report Type: 
  Country: None (occurrence: None)
  Receive Date: 20060127
  Receipt Date: 20051201
  Transmission Date: 20060701
  Serious: Yes (Other)
  Sender: FDA-Public Use
  Company Number: 2005165650

PATIENT
  Age: 67 Year
  Sex: Male
  Weight: 65.7716 kg

DRUGS (5)
  1. LYRICA [Suspect]
     Indication: NEURALGIA
     Dosage: 75 MG (75 MG, 1 IN 1 D), ORAL
     Route: 048
     Dates: start: 20051101
  2. METHADONE HCL [Suspect]
     Indication: ILL-DEFINED DISORDER
     Dosage: (20 MG), ORAL
     Route: 048
  3. MAXZIDE [Concomitant]
  4. MINOCYCLINE HCL [Concomitant]
  5. COLCHICUM JTL LIQ [Concomitant]

REACTIONS (2)
  - DRUG INTERACTION [None]
  - PAIN [None]
